FAERS Safety Report 4993881-4 (Version None)
Quarter: 2006Q2

REPORT INFORMATION
  Report Type: 
  Country: None (occurrence: None)
  Receive Date: 20060504
  Receipt Date: 20060504
  Transmission Date: 20061013
  Serious: Yes (Disabling)
  Sender: FDA-Public Use
  Company Number: None

PATIENT
  Sex: Male
  Weight: 80 kg

DRUGS (4)
  1. GALANTAMINE HYDROBROMIDE [Suspect]
     Indication: DEMENTIA ALZHEIMER'S TYPE
     Dosage: 4 MG BID PO
     Route: 048
     Dates: start: 20060317, end: 20060412
  2. LISINOPRIL [Concomitant]
  3. SERTRALINE [Concomitant]
  4. TERAZOSIN HCL [Concomitant]

REACTIONS (6)
  - BACK PAIN [None]
  - BLOOD URINE PRESENT [None]
  - CALCINOSIS [None]
  - HAEMATURIA [None]
  - HAEMORRHAGE URINARY TRACT [None]
  - THROMBOSIS [None]
